FAERS Safety Report 9655997 (Version 2)
Quarter: 2013Q4

REPORT INFORMATION
  Report Type: Report from Study
  Country: CA (occurrence: CA)
  Receive Date: 20131030
  Receipt Date: 20131105
  Transmission Date: 20140711
  Serious: Yes (Death, Hospitalization)
  Sender: FDA-Public Use
  Company Number: CA-JNJFOC-20131013886

PATIENT
  Sex: Male
  Weight: 71 kg

DRUGS (1)
  1. REMICADE [Suspect]
     Indication: RHEUMATOID ARTHRITIS
     Dosage: FOR MANY YEARS??FOR MORE THAN 10 YEARS
     Route: 042

REACTIONS (4)
  - Lung disorder [Fatal]
  - Septic shock [Unknown]
  - Staphylococcal infection [Unknown]
  - Infarction [Unknown]
